FAERS Safety Report 7347885-7 (Version None)
Quarter: 2011Q1

REPORT INFORMATION
  Report Type: 
  Country: None (occurrence: None)
  Receive Date: 20110311
  Receipt Date: 20110307
  Transmission Date: 20110831
  Serious: Yes (Hospitalization, Congenital Anomaly)
  Sender: FDA-Public Use
  Company Number: US-PFIZER INC-2011049188

PATIENT
  Sex: Female

DRUGS (3)
  1. PRENATAL VITAMINS [Concomitant]
     Dosage: UNK
     Route: 064
  2. EFFEXOR [Suspect]
     Dosage: 300 MG, UNK
     Route: 064
     Dates: start: 20060101
  3. LAMICTAL [Suspect]
     Indication: BIPOLAR DISORDER
     Dosage: 75 MG, UNK
     Route: 064
     Dates: start: 20090101

REACTIONS (7)
  - DRUG EXPOSURE VIA BREAST MILK [None]
  - DRUG EXPOSURE DURING PREGNANCY [None]
  - DYSPNOEA [None]
  - CRYING [None]
  - TRANCE [None]
  - TREMOR [None]
  - TRICUSPID VALVE PROLAPSE [None]
